FAERS Safety Report 17591027 (Version 1)
Quarter: 2020Q1

REPORT INFORMATION
  Report Type: Spontaneous
  Country: US (occurrence: US)
  Receive Date: 20200325
  Receipt Date: 20200325
  Transmission Date: 20200409
  Serious: Yes (Disabling)
  Sender: FDA-Public Use
  Company Number: None

PATIENT
  Age: 44 Year
  Sex: Female
  Weight: 120.66 kg

DRUGS (2)
  1. TEMOZOLOMIDE 100MG [Suspect]
     Active Substance: TEMOZOLOMIDE
     Indication: MALIGNANT MELANOMA
     Dosage: 3 CAPSULES (300 MG) DAILY DAYS 1-5 OF 28 DAY CYCLE-PO
     Route: 048
     Dates: start: 201906, end: 202002
  2. TEMOZOLOMIDE 180MG [Suspect]
     Active Substance: TEMOZOLOMIDE
     Indication: MALIGNANT MELANOMA
     Dosage: 1 CAPSULE (180 MG) DAILY DAYS 1-5 OF 28 DAY CYCLE-PO
     Route: 048
     Dates: start: 201906, end: 202002

REACTIONS (4)
  - Diplegia [None]
  - Hypoaesthesia [None]
  - Demyelination [None]
  - Autoimmune neuropathy [None]

NARRATIVE: CASE EVENT DATE: 20200224
